FAERS Safety Report 9718274 (Version 1)
Quarter: 2013Q4

REPORT INFORMATION
  Report Type: Spontaneous
  Country: US (occurrence: None)
  Receive Date: 20131125
  Receipt Date: 20131125
  Transmission Date: 20140711
  Serious: Yes (Other)
  Sender: FDA-Public Use
  Company Number: FK201305077

PATIENT
  Age: 75 Year
  Sex: Male

DRUGS (5)
  1. DOXORUBICIN [Suspect]
     Indication: MYCOSIS FUNGOIDES
  2. CYCLOPHOSPHAMIDE (CYCLOPHOSPHAMIDE) [Suspect]
     Indication: MYCOSIS FUNGOIDES
  3. VINCRISTINE [Suspect]
     Indication: MYCOSIS FUNGOIDES
  4. PREDNISONE (PREDNISONE) [Suspect]
     Indication: MYCOSIS FUNGOIDES
  5. BRENTUXIMAB VEDOTIN (BRENTUXIMAB VEDOTIN) INJECTION [Suspect]
     Indication: MYCOSIS FUNGOIDES
     Dosage: 1.8 MG/KG, 1 IN 3 WK

REACTIONS (2)
  - Neuropathy peripheral [None]
  - Dysgeusia [None]
